FAERS Safety Report 16212899 (Version 2)
Quarter: 2019Q2

REPORT INFORMATION
  Report Type: Spontaneous
  Country: US (occurrence: US)
  Receive Date: 20190418
  Receipt Date: 20190607
  Transmission Date: 20190711
  Serious: Yes (Other)
  Sender: FDA-Public Use
  Company Number: US-COLGATE PALMOLIVE COMPANY-20190401007

PATIENT

DRUGS (1)
  1. SOFTSOAP ANTIBACTERIAL WITH MOISTURIZERS CRISP CLEAN [Suspect]
     Active Substance: BENZALKONIUM CHLORIDE
     Dosage: DAILY ON HANDS-1X TO FACE, A LOT TO WASH HER FACE
     Dates: end: 20190403

REACTIONS (7)
  - Skin discolouration [Recovering/Resolving]
  - Second degree chemical burn of skin [Recovering/Resolving]
  - Blister [Recovering/Resolving]
  - Eye swelling [Recovering/Resolving]
  - Pain [Recovering/Resolving]
  - Intentional product misuse [Unknown]
  - Rash erythematous [Recovering/Resolving]

NARRATIVE: CASE EVENT DATE: 201904
